FAERS Safety Report 5670301-8 (Version None)
Quarter: 2008Q1

REPORT INFORMATION
  Report Type: 
  Country: None (occurrence: None)
  Receive Date: 20080314
  Receipt Date: 20080314
  Transmission Date: 20080703
  Serious: No
  Sender: FDA-Public Use
  Company Number: None

PATIENT
  Age: 59 Year
  Sex: Female
  Weight: 58.9676 kg

DRUGS (1)
  1. BONIVA [Suspect]
     Indication: OSTEOPENIA
     Dosage: ONE 150MG TABLET MONTHLY PO
     Route: 048
     Dates: start: 20080312, end: 20080312

REACTIONS (2)
  - MUSCULOSKELETAL DISCOMFORT [None]
  - MUSCULOSKELETAL PAIN [None]
